FAERS Safety Report 19207379 (Version 1)
Quarter: 2021Q2

REPORT INFORMATION
  Report Type: Spontaneous
  Country: FR (occurrence: FR)
  Receive Date: 20210503
  Receipt Date: 20210503
  Transmission Date: 20210717
  Serious: Yes (Hospitalization)
  Sender: FDA-Public Use
  Company Number: FR-PFM-2021-03366

PATIENT

DRUGS (1)
  1. HEMANGIOL [Suspect]
     Active Substance: PROPRANOLOL HYDROCHLORIDE
     Indication: HAEMANGIOMA
     Dosage: 1 MG/KG
     Route: 048
     Dates: start: 20210203, end: 20210215

REACTIONS (2)
  - Somnolence [Recovering/Resolving]
  - Middle insomnia [Recovered/Resolved]

NARRATIVE: CASE EVENT DATE: 20210210
